FAERS Safety Report 7455294-5 (Version None)
Quarter: 2011Q2

REPORT INFORMATION
  Report Type: 
  Country: None (occurrence: None)
  Receive Date: 20110503
  Receipt Date: 20110422
  Transmission Date: 20111010
  Serious: Yes (Death, Other)
  Sender: FDA-Public Use
  Company Number: JP-PFIZER INC-2011091635

PATIENT
  Age: 73 Year
  Sex: Female

DRUGS (14)
  1. KETOPROFEN [Concomitant]
     Dosage: UNK
  2. SHAKUYAKU-KANZO-TO [Concomitant]
     Dosage: UNK
  3. MEXITIL [Concomitant]
     Dosage: UNK
  4. CALTAN [Concomitant]
     Dosage: UNK
  5. MIGLITOL [Suspect]
     Indication: DIABETES MELLITUS
     Dosage: 50 MG, 3X/DAY
     Route: 048
     Dates: start: 20110226, end: 20110302
  6. ALFAROL [Concomitant]
     Dosage: UNK
  7. MITIGLINIDE [Concomitant]
     Dosage: UNK
  8. PATANOL [Concomitant]
     Dosage: UNK
  9. ASPIRIN [Concomitant]
     Dosage: UNK
  10. PREDNISOLONE [Concomitant]
     Dosage: UNK
  11. ZANTAC [Concomitant]
     Dosage: UNK
  12. IDOMETHINE [Concomitant]
     Dosage: UNK
  13. PURSENNID [Concomitant]
     Dosage: UNK
  14. MUCOSTA [Concomitant]
     Dosage: UNK

REACTIONS (1)
  - SMALL INTESTINAL PERFORATION [None]
